FAERS Safety Report 6052115-2 (Version None)
Quarter: 2009Q1

REPORT INFORMATION
  Report Type: 
  Country: None (occurrence: None)
  Receive Date: 20090126
  Receipt Date: 20090119
  Transmission Date: 20090719
  Serious: Yes (Death)
  Sender: FDA-Public Use
  Company Number: US-B.I. PHARMACEUTICALS,INC./RIDGEFIELD-2009-DE-00582GD

PATIENT
  Age: 69 Year
  Sex: Male

DRUGS (14)
  1. CLONIDINE HCL [Suspect]
  2. RANITIDINE [Suspect]
  3. AMLODIPINE [Suspect]
     Route: 048
  4. METOPROLOL [Suspect]
  5. SALICYLIC ACID [Suspect]
  6. ALBUTEROL [Suspect]
  7. TIAGABINE HCL [Suspect]
  8. DIURETIC [Suspect]
  9. CLOPIDOGREL [Suspect]
  10. LISINOPRIL [Suspect]
  11. EZETIMIBE [Suspect]
  12. LORAZEPAM [Suspect]
  13. ATORVASTATIN CALCIUM [Suspect]
  14. PHENYTOIN [Suspect]

REACTIONS (2)
  - COMPLETED SUICIDE [None]
  - DRUG ABUSE [None]
